FAERS Safety Report 20719391 (Version 1)
Quarter: 2022Q2

REPORT INFORMATION
  Report Type: Spontaneous
  Country: US (occurrence: None)
  Receive Date: 20220415
  Receipt Date: 20220415
  Transmission Date: 20220721
  Serious: Yes (Other)
  Sender: FDA-Public Use
  Company Number: None

PATIENT
  Age: 61 Year
  Sex: Male
  Weight: 71.2 kg

DRUGS (13)
  1. PAXLOVID [Suspect]
     Active Substance: NIRMATRELVIR\RITONAVIR
     Indication: COVID-19
     Dosage: FREQUENCY : TWICE A DAY;?
     Route: 048
     Dates: start: 202201, end: 20220128
  2. ACETAMINOPHEN [Concomitant]
     Active Substance: ACETAMINOPHEN
     Dates: start: 20220105, end: 20220201
  3. ASCORBIC ACID [Concomitant]
     Active Substance: ASCORBIC ACID
     Dates: start: 202201, end: 20220201
  4. VITAMIN B COMPLEX [Concomitant]
     Active Substance: CYANOCOBALAMIN\DEXPANTHENOL\NIACINAMIDE\PYRIDOXINE HYDROCHLORIDE\RIBOFLAVIN 5^-PHOSPHATE SODIUM\THIA
     Dates: start: 20220102, end: 20220201
  5. BETHANECHOL [Concomitant]
     Active Substance: BETHANECHOL
     Dates: start: 20220121, end: 20220201
  6. ENOXAPARIN [Concomitant]
     Active Substance: ENOXAPARIN
     Dates: start: 20220103, end: 20220201
  7. FISH OIL [Concomitant]
     Active Substance: FISH OIL
     Dates: start: 20220103, end: 20220201
  8. LEVOTHYROXINE [Concomitant]
     Active Substance: LEVOTHYROXINE
     Dates: start: 20220103, end: 20220201
  9. MAGNESIUM MALATE [Concomitant]
     Active Substance: MAGNESIUM MALATE
     Dates: start: 20220105, end: 20220201
  10. MELATONIN [Concomitant]
     Active Substance: MELATONIN
     Dates: start: 20220102, end: 20220201
  11. PREGABALIN [Concomitant]
     Active Substance: PREGABALIN
     Dates: start: 20220102, end: 20220201
  12. SENNA [Concomitant]
     Active Substance: SENNA LEAF\SENNOSIDES\SENNOSIDES A AND B
     Dates: start: 20220102, end: 20220201
  13. ZINC SULFATE [Concomitant]
     Active Substance: ZINC SULFATE
     Dates: start: 20220127, end: 20220201

REACTIONS (3)
  - Liver function test increased [None]
  - Alanine aminotransferase increased [None]
  - Aspartate aminotransferase increased [None]

NARRATIVE: CASE EVENT DATE: 20220125
